FAERS Safety Report 6970677-5 (Version None)
Quarter: 2010Q3

REPORT INFORMATION
  Report Type: 
  Country: None (occurrence: None)
  Receive Date: 20100908
  Receipt Date: 20100827
  Transmission Date: 20110219
  Serious: Yes (Other)
  Sender: FDA-Public Use
  Company Number: US-PFIZER INC-2010081054

PATIENT
  Sex: Male

DRUGS (1)
  1. CHANTIX [Suspect]
     Indication: SMOKING CESSATION THERAPY
     Dosage: STARTER PACK AND SEVERAL MONTHLY PACKS
     Dates: start: 20090501, end: 20100101

REACTIONS (5)
  - AGGRESSION [None]
  - AMNESIA [None]
  - DEPRESSION [None]
  - IRRITABILITY [None]
  - SUICIDAL IDEATION [None]
